FAERS Safety Report 6763391-2 (Version None)
Quarter: 2010Q2

REPORT INFORMATION
  Report Type: 
  Country: None (occurrence: None)
  Receive Date: 20100610
  Receipt Date: 20100517
  Transmission Date: 20101027
  Serious: Yes (Other)
  Sender: FDA-Public Use
  Company Number: US-ASTRAZENECA-2009SE17652

PATIENT
  Age: 18218 Day
  Sex: Female
  Weight: 105.2 kg

DRUGS (4)
  1. SEROQUEL [Suspect]
     Route: 048
     Dates: start: 20071116
  2. LAMICTAL [Concomitant]
     Route: 048
     Dates: start: 20071116
  3. LISINOPRIL AND HYDROCHLOROTHIAZIDE [Concomitant]
     Dosage: 10 MG/12.5 MG 1 PO QD
     Dates: start: 20071116
  4. PLAVIX [Concomitant]
     Dates: start: 20071116

REACTIONS (3)
  - DIABETES MELLITUS [None]
  - DIABETIC NEUROPATHY [None]
  - TYPE 2 DIABETES MELLITUS [None]
